FAERS Safety Report 11020334 (Version 2)
Quarter: 2015Q3

REPORT INFORMATION
  Report Type: Spontaneous
  Country: US (occurrence: US)
  Receive Date: 20150413
  Receipt Date: 20150720
  Transmission Date: 20151125
  Serious: No
  Sender: FDA-Public Use
  Company Number: US-ASTRAZENECA-2015SE32333

PATIENT
  Sex: Female
  Weight: 65.8 kg

DRUGS (2)
  1. BYDUREON [Suspect]
     Active Substance: EXENATIDE
     Indication: TYPE 2 DIABETES MELLITUS
     Route: 058
     Dates: start: 2014
  2. JANUVIA [Concomitant]
     Active Substance: SITAGLIPTIN PHOSPHATE
     Indication: DIABETES MELLITUS

REACTIONS (9)
  - Injection site bruising [Unknown]
  - Injection site haemorrhage [Unknown]
  - Injection site mass [Unknown]
  - Intentional product misuse [Unknown]
  - Underdose [Unknown]
  - Drug dose omission [Unknown]
  - Injection site extravasation [Unknown]
  - Injection site pain [Unknown]
  - Product quality issue [Unknown]
